FAERS Safety Report 23321077 (Version 1)
Quarter: 2023Q4

REPORT INFORMATION
  Report Type: Report from Study
  Country: HU (occurrence: HU)
  Receive Date: 20231220
  Receipt Date: 20231220
  Transmission Date: 20240109
  Serious: Yes (Other)
  Sender: FDA-Public Use
  Company Number: HU-SUN PHARMACEUTICAL INDUSTRIES LTD-2023R1-424574

PATIENT
  Age: 73 Year
  Sex: Male

DRUGS (2)
  1. DEXAMETHASONE [Suspect]
     Active Substance: DEXAMETHASONE
     Indication: Salvage therapy
     Dosage: UNK
     Route: 065
     Dates: start: 20220120
  2. VENETOCLAX [Suspect]
     Active Substance: VENETOCLAX
     Indication: Salvage therapy
     Dosage: 400 MILLIGRAM
     Route: 065
     Dates: start: 20220120

REACTIONS (1)
  - Therapy partial responder [Unknown]
